FAERS Safety Report 7896172-7 (Version None)
Quarter: 2011Q4

REPORT INFORMATION
  Report Type: 
  Country: None (occurrence: None)
  Receive Date: 20111106
  Receipt Date: 20110906
  Transmission Date: 20120403
  Serious: No
  Sender: FDA-Public Use
  Company Number: US-AMGEN-USASP2011045574

PATIENT
  Age: 49 Year
  Sex: Female

DRUGS (1)
  1. ENBREL [Suspect]
     Indication: PSORIASIS
     Dosage: 50 MG, QWK
     Dates: start: 20110829

REACTIONS (6)
  - NECK PAIN [None]
  - COUGH [None]
  - RHINORRHOEA [None]
  - PARAESTHESIA [None]
  - DIZZINESS [None]
  - HEADACHE [None]
